FAERS Safety Report 17141309 (Version 1)
Quarter: 2019Q4

REPORT INFORMATION
  Report Type: Spontaneous
  Country: US (occurrence: US)
  Receive Date: 20191211
  Receipt Date: 20191211
  Transmission Date: 20200122
  Serious: No
  Sender: FDA-Public Use
  Company Number: US-CELGENEUS-USA-20191202386

PATIENT
  Sex: Female

DRUGS (2)
  1. REVLIMID [Suspect]
     Active Substance: LENALIDOMIDE
     Indication: EXPOSURE TO RADIATION
     Dosage: 25 MILLIGRAM
     Route: 048
     Dates: start: 201810
  2. REVLIMID [Suspect]
     Active Substance: LENALIDOMIDE
     Indication: PLASMA CELL MYELOMA
     Dosage: 25 MILLIGRAM
     Route: 048
     Dates: start: 20181130

REACTIONS (2)
  - Eye pruritus [Not Recovered/Not Resolved]
  - Eye irritation [Not Recovered/Not Resolved]
